FAERS Safety Report 5597968-7 (Version None)
Quarter: 2008Q1

REPORT INFORMATION
  Report Type: 
  Country: None (occurrence: None)
  Receive Date: 20080116
  Receipt Date: 20080110
  Transmission Date: 20080703
  Serious: Yes (Other)
  Sender: FDA-Public Use
  Company Number: GXKR2008DE00616

PATIENT
  Age: 49 Year
  Sex: Male

DRUGS (1)
  1. DEXAHEXAL (NGX) (DEXAMETHASONE) SOLUTION FOR INJECTION, 4MG/ML [Suspect]
     Dosage: 4 MG/1 ML, INJECTION NOS

REACTIONS (1)
  - PARAPARESIS [None]
